FAERS Safety Report 9732456 (Version 2)
Quarter: 2013Q4

REPORT INFORMATION
  Report Type: Spontaneous
  Country: US (occurrence: None)
  Receive Date: 20131203
  Receipt Date: 20131206
  Transmission Date: 20140711
  Serious: Yes (Hospitalization)
  Sender: FDA-Public Use
  Company Number: AUR-APL-2013-10074

PATIENT
  Age: 13 Year
  Sex: Male

DRUGS (2)
  1. QUETIAPINE [Suspect]
     Indication: AFFECTIVE DISORDER
     Dosage: (500MG, 1 D), ORAL
     Route: 048
  2. VALPROIC ACID) (VALPROIC ACID) [Concomitant]

REACTIONS (16)
  - Excessive eye blinking [None]
  - Musculoskeletal stiffness [None]
  - Dyskinesia [None]
  - Muscle twitching [None]
  - Drug abuse [None]
  - Wrong technique in drug usage process [None]
  - Incorrect route of drug administration [None]
  - Treatment noncompliance [None]
  - Blepharospasm [None]
  - Tachycardia [None]
  - Tachypnoea [None]
  - Mydriasis [None]
  - Myoclonus [None]
  - Restlessness [None]
  - Toxicity to various agents [None]
  - Akathisia [None]
